FAERS Safety Report 8589471-7 (Version None)
Quarter: 2012Q2

REPORT INFORMATION
  Report Type: 
  Country: None (occurrence: None)
  Receive Date: 20120423
  Receipt Date: 20100812
  Transmission Date: 20120825
  Serious: Yes (Hospitalization)
  Sender: FDA-Public Use
  Company Number: PHHY2010US54280

PATIENT
  Age: 73 Year
  Sex: Female

DRUGS (2)
  1. LAPATINIB [Suspect]
     Dosage: 1500 MG DAILY, ORAL
     Route: 048
     Dates: start: 20100514
  2. FEMARA [Suspect]

REACTIONS (3)
  - DIARRHOEA [None]
  - CHEST PAIN [None]
  - OEDEMA PERIPHERAL [None]
